FAERS Safety Report 7353162-0 (Version None)
Quarter: 2011Q1

REPORT INFORMATION
  Report Type: 
  Country: None (occurrence: None)
  Receive Date: 20110315
  Receipt Date: 20110311
  Transmission Date: 20110831
  Serious: Yes (Life-Threatening, Hospitalization)
  Sender: FDA-Public Use
  Company Number: FR-SANOFI-AVENTIS-2011SA014917

PATIENT
  Age: 68 Year
  Sex: Male

DRUGS (5)
  1. FUCIDINE CAP [Concomitant]
     Route: 061
     Dates: start: 20101217, end: 20101219
  2. FUCIDINE CAP [Suspect]
     Indication: INTERTRIGO
     Route: 048
     Dates: start: 20101219, end: 20101219
  3. DIPROSONE [Concomitant]
     Indication: INTERTRIGO
     Route: 030
     Dates: start: 20101219, end: 20101219
  4. FUCIDINE CAP [Suspect]
     Route: 048
     Dates: start: 20101220, end: 20101220
  5. LOVENOX [Suspect]
     Route: 058
     Dates: start: 20101223, end: 20101226

REACTIONS (3)
  - TOXIC SKIN ERUPTION [None]
  - THROMBOCYTOPENIA [None]
  - EOSINOPHIL COUNT INCREASED [None]
